FAERS Safety Report 10171652 (Version 1)
Quarter: 2014Q2

REPORT INFORMATION
  Report Type: Spontaneous
  Country: US (occurrence: US)
  Receive Date: 20140514
  Receipt Date: 20140514
  Transmission Date: 20141212
  Serious: Yes (Hospitalization, Other)
  Sender: FDA-Public Use
  Company Number: US-ASTRAZENECA-2014SE29699

PATIENT
  Age: 55 Year
  Sex: Female
  Weight: 69.9 kg

DRUGS (10)
  1. NEXIUM [Suspect]
     Indication: GASTROOESOPHAGEAL REFLUX DISEASE
     Route: 048
     Dates: start: 2003
  2. ADDERAL XR [Concomitant]
     Indication: ATTENTION DEFICIT/HYPERACTIVITY DISORDER
     Route: 048
     Dates: start: 2010
  3. AMPHETAMINE SALT [Concomitant]
     Indication: ATTENTION DEFICIT/HYPERACTIVITY DISORDER
     Route: 048
     Dates: start: 2010
  4. FLUOXETINE [Concomitant]
     Indication: DEPRESSION
     Route: 048
     Dates: start: 2004
  5. FLUOXETINE [Concomitant]
     Indication: DEPRESSION
     Dosage: 5MG DAILT AT 3PM DAILY
     Route: 048
     Dates: start: 2004
  6. PREMARIN [Concomitant]
     Indication: HORMONE LEVEL ABNORMAL
     Route: 048
     Dates: start: 200101
  7. DYZAIDE [Concomitant]
     Indication: BLOOD PRESSURE
     Dosage: 37.5/25, 1 TAB DAILY
     Route: 048
     Dates: start: 2004
  8. CLARITIN D 12 HOUR [Concomitant]
     Indication: HYPERSENSITIVITY
     Dosage: 1 TAB DAILY
     Route: 048
     Dates: start: 1994
  9. BENADRYL OTC [Concomitant]
     Indication: UPPER-AIRWAY COUGH SYNDROME
     Dosage: 1 TAB TID
     Route: 048
     Dates: start: 2011
  10. AMBIEN [Concomitant]
     Indication: SLEEP DISORDER
     Route: 048
     Dates: start: 2004

REACTIONS (5)
  - Staphylococcal infection [Unknown]
  - Brain neoplasm [Unknown]
  - Trigeminal neuralgia [Unknown]
  - Scoliosis [Unknown]
  - Intentional product misuse [Unknown]
